FAERS Safety Report 18081013 (Version 2)
Quarter: 2020Q3

REPORT INFORMATION
  Report Type: Spontaneous
  Country: ES (occurrence: ES)
  Receive Date: 20200728
  Receipt Date: 20200928
  Transmission Date: 20201103
  Serious: Yes (Death, Other)
  Sender: FDA-Public Use
  Company Number: ES-ALLERGAN-2028115US

PATIENT

DRUGS (4)
  1. TIGECYCLINE. [Suspect]
     Active Substance: TIGECYCLINE
     Indication: KLEBSIELLA INFECTION
     Dosage: DOUBLE DOSE, LOADING DOSE
     Route: 065
  2. CEFTAZIDIME;AVIBACTAM ? BP [Suspect]
     Active Substance: AVIBACTAM SODIUM\CEFTAZIDIME
     Indication: KLEBSIELLA INFECTION
     Dosage: 2.5G, EVERY 8 HOURS IN A 2 HOUR INFUSSION
     Route: 042
     Dates: start: 20140919, end: 20140929
  3. GENTAMICIN. [Suspect]
     Active Substance: GENTAMICIN
     Indication: KLEBSIELLA INFECTION
     Dosage: SINGLE DAILY DOSE OF 5MG/KG AND ADJUSTED ACCORDING TO BLOOD LEVEL CONCENTRATIONS
     Route: 042
     Dates: start: 20140917, end: 20141006
  4. TIGECYCLINE. [Suspect]
     Active Substance: TIGECYCLINE
     Dosage: 100 MG/ 12 HOURS
     Route: 065

REACTIONS (1)
  - Acute kidney injury [Fatal]
